FAERS Safety Report 8861297 (Version 1)
Quarter: 2012Q4

REPORT INFORMATION
  Report Type: 
  Country: US (occurrence: US)
  Receive Date: 20121026
  Receipt Date: 20121026
  Transmission Date: 20130627
  Serious: No
  Sender: FDA-Public Use
  Company Number: US-PFIZER INC-2012268069

PATIENT
  Age: 59 Year
  Sex: Female
  Weight: 63.49 kg

DRUGS (2)
  1. NEURONTIN [Suspect]
     Dosage: 100 mg, 3x/day
  2. CELEBREX [Suspect]
     Dosage: UNK

REACTIONS (1)
  - Drug ineffective [Unknown]
